FAERS Safety Report 8494463-2 (Version None)
Quarter: 2012Q3

REPORT INFORMATION
  Report Type: 
  Country: None (occurrence: None)
  Receive Date: 20120709
  Receipt Date: 20120702
  Transmission Date: 20120928
  Serious: Yes (Other)
  Sender: FDA-Public Use
  Company Number: US-BAYER-201041884NA

PATIENT
  Age: 49 Year
  Sex: Male
  Weight: 165 kg

DRUGS (17)
  1. SYNTHROID [Concomitant]
     Dosage: 0.1 MG, DAILY
     Route: 048
  2. ETOMIDATE [Concomitant]
     Dosage: 28 MG, UNK
     Dates: start: 20040820, end: 20040820
  3. PLAVIX [Concomitant]
  4. PAVULON [Concomitant]
     Dosage: 14 MG, UNK
     Dates: start: 20040820, end: 20040820
  5. TRASYLOL [Suspect]
     Indication: ARTERIOSCLEROSIS CORONARY ARTERY
     Dosage: 100 ML, PUMP PRIME
     Route: 042
     Dates: start: 20040820, end: 20040820
  6. TRASYLOL [Suspect]
     Indication: CORONARY ARTERY BYPASS
  7. ASPIRIN [Concomitant]
  8. LOPRESSOR [Concomitant]
  9. NORVASC [Concomitant]
     Dosage: 5 MG, QD
     Route: 048
  10. PROTAMINE SULFATE [Concomitant]
     Dosage: 400 MG, UNK
     Dates: start: 20040820, end: 20040820
  11. HEPARIN [Concomitant]
     Dosage: UNK
     Dates: start: 20040820, end: 20040820
  12. ANCEF [Concomitant]
     Dosage: 2 G, UNK
     Dates: start: 20040820, end: 20040820
  13. INSULIN [INSULIN] [Concomitant]
  14. VANCOMYCIN [Concomitant]
     Dosage: 2 G, UNK
     Dates: start: 20040820, end: 20040820
  15. VERSED [Concomitant]
     Dosage: 14 MG, UNK
     Dates: start: 20040820, end: 20040820
  16. THEO-DUR [Concomitant]
  17. PROTONIX [Concomitant]
     Dosage: 40 MG, UNK
     Dates: start: 20040820, end: 20040820

REACTIONS (13)
  - ANXIETY [None]
  - EMOTIONAL DISTRESS [None]
  - FEAR OF DEATH [None]
  - RENAL FAILURE [None]
  - DEPRESSION [None]
  - UNEVALUABLE EVENT [None]
  - FEAR [None]
  - MULTI-ORGAN FAILURE [None]
  - PAIN [None]
  - NERVOUSNESS [None]
  - ANHEDONIA [None]
  - RENAL INJURY [None]
  - INJURY [None]
